FAERS Safety Report 18845819 (Version 1)
Quarter: 2021Q1

REPORT INFORMATION
  Report Type: Spontaneous
  Country: DE (occurrence: DE)
  Receive Date: 20210204
  Receipt Date: 20210204
  Transmission Date: 20210419
  Serious: Yes (Life-Threatening, Other)
  Sender: FDA-Public Use
  Company Number: DE-DEXPHARM-20210097

PATIENT
  Age: 29 Year
  Sex: Female
  Weight: 53 kg

DRUGS (6)
  1. VALDOXAN [Suspect]
     Active Substance: AGOMELATINE
     Indication: RESTLESSNESS
     Dosage: 25 ? 50 MG
     Route: 048
     Dates: start: 201911, end: 20201113
  2. VENLAFAXINE [Suspect]
     Active Substance: VENLAFAXINE HYDROCHLORIDE
     Indication: DEPRESSION
     Dosage: 225 MG
     Route: 048
     Dates: start: 20190810, end: 20201231
  3. TAVOR (LORAZEPAM) [Suspect]
     Active Substance: LORAZEPAM
     Indication: ANXIETY
     Dosage: 1 TBL CA 6 X VERORDNET OHNE DIES ZU WOLLEN
     Route: 048
     Dates: start: 201907, end: 201909
  4. VENLAFAXINE [Suspect]
     Active Substance: VENLAFAXINE HYDROCHLORIDE
     Indication: DEPRESSION
     Dosage: 150 MG
     Route: 048
     Dates: start: 2019, end: 20201130
  5. VENLAFAXINE 37.5 MG [Suspect]
     Active Substance: VENLAFAXINE HYDROCHLORIDE
     Indication: DEPRESSION
     Dosage: 37.5 MG
     Route: 048
     Dates: start: 20190810
  6. FERRO?SANOL DUODENAL [Suspect]
     Active Substance: FERROUS GLYCINE SULFATE
     Indication: FATIGUE
     Dosage: 1?0?0; 100 MG T+#228;GLICH MORGENS  + BEI BEDARF MEHR
     Route: 048
     Dates: start: 20201004, end: 20201112

REACTIONS (1)
  - Serotonin syndrome [Unknown]
